FAERS Safety Report 12736345 (Version 1)
Quarter: 2016Q3

REPORT INFORMATION
  Report Type: Spontaneous
  Country: US (occurrence: US)
  Receive Date: 20160912
  Receipt Date: 20160912
  Transmission Date: 20161109
  Serious: Yes (Hospitalization)
  Sender: FDA-Public Use
  Company Number: None

PATIENT
  Age: 31 Year
  Sex: Male
  Weight: 61.4 kg

DRUGS (9)
  1. RIBAVIRIN. [Suspect]
     Active Substance: RIBAVIRIN
     Indication: HEPATITIS C
     Route: 048
     Dates: start: 20160219, end: 20160526
  2. KAYEXALATE [Concomitant]
     Active Substance: SODIUM POLYSTYRENE SULFONATE
  3. ROBAXIN [Concomitant]
     Active Substance: METHOCARBAMOL
  4. VALIUM [Concomitant]
     Active Substance: DIAZEPAM
  5. LANTUS [Concomitant]
     Active Substance: INSULIN GLARGINE
  6. PROTONIX [Concomitant]
     Active Substance: PANTOPRAZOLE SODIUM
  7. VIEKIRA PAK [Suspect]
     Active Substance: DASABUVIR\OMBITASVIR\PARITAPREVIR\RITONAVIR
     Indication: HEPATITIS C
     Dosage: VIEKIRA PAK - 12.5/75/50/250MG - 1XDAILY - PO
     Route: 048
     Dates: start: 20160219, end: 20160526
  8. SEROQUEL [Concomitant]
     Active Substance: QUETIAPINE FUMARATE
  9. HUMALOG [Concomitant]
     Active Substance: INSULIN LISPRO

REACTIONS (8)
  - Lethargy [None]
  - Diabetic ketoacidosis [None]
  - Hyperglycaemia [None]
  - Leukocytosis [None]
  - Vomiting [None]
  - Hypertension [None]
  - Nausea [None]
  - Diarrhoea [None]

NARRATIVE: CASE EVENT DATE: 20160412
